FAERS Safety Report 8772861 (Version 1)
Quarter: 2012Q4

REPORT INFORMATION
  Report Type: 
  Country: US (occurrence: US)
  Receive Date: 20120907
  Receipt Date: 20120907
  Transmission Date: 20130627
  Serious: Yes (Death)
  Sender: FDA-Public Use
  Company Number: US-CELGENEUS-163-20785-12071210

PATIENT
  Age: 86 None
  Sex: Male

DRUGS (4)
  1. THALOMID [Suspect]
     Indication: MULTIPLE MYELOMA
     Dosage: 100 Milligram
     Route: 048
     Dates: start: 201204, end: 2012
  2. THALOMID [Suspect]
     Dosage: 100 Milligram
     Route: 048
     Dates: start: 20120619, end: 20120625
  3. VELCADE [Concomitant]
     Indication: MYELOMA
     Route: 051
  4. STEROIDS [Concomitant]
     Indication: MYELOMA
     Route: 051

REACTIONS (3)
  - Cardiovascular disorder [Fatal]
  - Full blood count decreased [Unknown]
  - No therapeutic response [Unknown]
